FAERS Safety Report 12715069 (Version 1)
Quarter: 2016Q3

REPORT INFORMATION
  Report Type: Report from Study
  Country: PE (occurrence: PE)
  Receive Date: 20160905
  Receipt Date: 20160905
  Transmission Date: 20161109
  Serious: Yes (Other)
  Sender: FDA-Public Use
  Company Number: PE-TEVA-689843ISR

PATIENT
  Age: 66 Year

DRUGS (1)
  1. FILARTROS 20 MG [Suspect]
     Active Substance: LEFLUNOMIDE
     Dosage: 20 MILLIGRAM DAILY;
     Route: 048
     Dates: start: 201407, end: 201603

REACTIONS (2)
  - Helicobacter gastritis [Recovered/Resolved]
  - Gastritis erosive [Unknown]

NARRATIVE: CASE EVENT DATE: 201603
